FAERS Safety Report 12886595 (Version 2)
Quarter: 2019Q3

REPORT INFORMATION
  Report Type: Spontaneous
  Country: US (occurrence: US)
  Receive Date: 20161026
  Receipt Date: 20190903
  Transmission Date: 20191004
  Serious: No
  Sender: FDA-Public Use
  Company Number: US-PFIZER INC-2016497374

PATIENT
  Age: 59 Year
  Sex: Female

DRUGS (1)
  1. QUIBRON (GUAIFENESIN\THEOPHYLLINE) [Suspect]
     Active Substance: GUAIFENESIN\THEOPHYLLINE
     Dosage: UNK

REACTIONS (1)
  - Drug hypersensitivity [Unknown]
